FAERS Safety Report 6651610-2 (Version None)
Quarter: 2010Q1

REPORT INFORMATION
  Report Type: 
  Country: None (occurrence: None)
  Receive Date: 20100325
  Receipt Date: 20100316
  Transmission Date: 20100710
  Serious: Yes (Hospitalization)
  Sender: FDA-Public Use
  Company Number: DE-ELI_LILLY_AND_COMPANY-DE201003004680

PATIENT
  Age: 58 Year
  Sex: Female
  Weight: 96 kg

DRUGS (4)
  1. GEMCITABINE HCL [Suspect]
     Indication: BREAST CANCER
     Dosage: 1980 MG, UNK
     Route: 042
     Dates: start: 20100312
  2. DEXAMETHASONE [Concomitant]
     Indication: NAUSEA
     Dosage: 8 MG, UNK
     Route: 042
     Dates: start: 20100312, end: 20100312
  3. ONDANSETRON [Concomitant]
     Indication: NAUSEA
     Dosage: 8 MG, UNK
     Route: 042
     Dates: start: 20100312, end: 20100312
  4. GRANULOKINE [Concomitant]
     Indication: LEUKOPENIA
     Dosage: 480 UG, UNK
     Route: 058
     Dates: start: 20100307, end: 20100311

REACTIONS (3)
  - BRONCHITIS [None]
  - CIRCULATORY COLLAPSE [None]
  - WHITE BLOOD CELL COUNT DECREASED [None]
